FAERS Safety Report 10429600 (Version 1)
Quarter: 2014Q3

REPORT INFORMATION
  Report Type: Spontaneous
  Country: US (occurrence: None)
  Receive Date: 20140801
  Receipt Date: 20140801
  Transmission Date: 20150326
  Serious: Yes (Hospitalization)
  Sender: FDA-Public Use
  Company Number: AEUSA201300396

PATIENT
  Age: 49 Year
  Sex: Female

DRUGS (16)
  1. SOMA [Concomitant]
     Active Substance: CARISOPRODOL
  2. LISINOPRIL. [Concomitant]
     Active Substance: LISINOPRIL
  3. FOLIC ACID. [Concomitant]
     Active Substance: FOLIC ACID
  4. CELEXA [Concomitant]
     Active Substance: CITALOPRAM HYDROBROMIDE
  5. CLONAZEPAM. [Concomitant]
     Active Substance: CLONAZEPAM
  6. VERAPAMIL [Concomitant]
     Active Substance: VERAPAMIL HYDROCHLORIDE
  7. OXYBUTYNIN [Concomitant]
     Active Substance: OXYBUTYNIN
  8. NEURONTIN [Concomitant]
     Active Substance: GABAPENTIN
  9. XARELTO [Concomitant]
     Active Substance: RIVAROXABAN
  10. GAMUNEX-C [Suspect]
     Active Substance: HUMAN IMMUNOGLOBULIN G
     Indication: CHRONIC INFLAMMATORY DEMYELINATING POLYRADICULONEUROPATHY
     Dosage: 10 GM; QOW; IV
     Route: 042
     Dates: start: 20130802
  11. XANAX [Concomitant]
     Active Substance: ALPRAZOLAM
  12. PLAQUENIL [Concomitant]
     Active Substance: HYDROXYCHLOROQUINE SULFATE
  13. TRAMADOL [Concomitant]
     Active Substance: TRAMADOL
  14. METOPROLOL [Concomitant]
     Active Substance: METOPROLOL
  15. RESTORIL [Concomitant]
     Active Substance: TEMAZEPAM
  16. NORCO [Concomitant]
     Active Substance: ACETAMINOPHEN\HYDROCODONE BITARTRATE

REACTIONS (1)
  - Deep vein thrombosis [None]

NARRATIVE: CASE EVENT DATE: 20131021
